FAERS Safety Report 5512402-0 (Version None)
Quarter: 2007Q4

REPORT INFORMATION
  Report Type: 
  Country: None (occurrence: None)
  Receive Date: 20071108
  Receipt Date: 20071030
  Transmission Date: 20080405
  Serious: Yes (Hospitalization)
  Sender: FDA-Public Use
  Company Number: 23033M07USA

PATIENT
  Sex: Female

DRUGS (9)
  1. REBIF [Suspect]
     Indication: MULTIPLE SCLEROSIS
     Dosage: 44 MCG, 3 IN 1 WEEKS
     Dates: start: 20050101
  2. ESTROGEN (ESTROGEN NOS) [Suspect]
     Dates: end: 20071030
  3. BUPROPION HCL [Concomitant]
  4. ZOLOFT (SERTRALINR HYDROCHLORIDE) [Concomitant]
  5. BACLOFEN [Concomitant]
  6. SEROQUEL [Concomitant]
  7. OXYBUTYNIN CHLORIDE [Concomitant]
  8. ALEVE [Concomitant]
  9. AMANTADINE HCL [Concomitant]

REACTIONS (1)
  - PULMONARY HYPERTENSION [None]
